FAERS Safety Report 20375462 (Version 3)
Quarter: 2022Q3

REPORT INFORMATION
  Report Type: Report from Study
  Country: US (occurrence: US)
  Receive Date: 20220125
  Receipt Date: 20220824
  Transmission Date: 20221026
  Serious: Yes (Hospitalization)
  Sender: FDA-Public Use
  Company Number: US-Taiho Oncology Inc-EU-2022-00149

PATIENT
  Age: 67 Year
  Sex: Male
  Weight: 64.2 kg

DRUGS (7)
  1. TIPIRACIL HYDROCHLORIDE\TRIFLURIDINE [Suspect]
     Active Substance: TIPIRACIL HYDROCHLORIDE\TRIFLURIDINE
     Indication: Oesophageal adenocarcinoma
     Dosage: FREQUENCY UNKNOWN. CYCLE 2
     Route: 048
     Dates: start: 20211105, end: 20211203
  2. TIPIRACIL HYDROCHLORIDE\TRIFLURIDINE [Suspect]
     Active Substance: TIPIRACIL HYDROCHLORIDE\TRIFLURIDINE
     Indication: Oesophageal carcinoma
  3. RAMUCIRUMAB [Suspect]
     Active Substance: RAMUCIRUMAB
     Indication: Oesophageal adenocarcinoma
     Dosage: FREQUENCY UNKNOWN. CYCLE 2.
     Route: 048
     Dates: start: 20211105, end: 20211204
  4. TEMOVATE [Concomitant]
     Active Substance: CLOBETASOL PROPIONATE
     Dosage: 1 APPLICATION TOPICALLY 2 TIMES A DAY
     Route: 061
     Dates: start: 20210506
  5. CANNABIS SATIVA SUBSP. INDICA TOP [Concomitant]
     Active Substance: CANNABIS SATIVA SUBSP. INDICA TOP
     Dosage: 1 EACH BY MOUTH DAILY
     Route: 048
  6. PRILOSEC [Concomitant]
     Active Substance: OMEPRAZOLE MAGNESIUM
     Route: 048
     Dates: start: 20211020
  7. MIRALAX [Concomitant]
     Active Substance: POLYETHYLENE GLYCOL 3350
     Dosage: 1 PACKET (17 G TOTAL) BY MOUTH DAILY AS NEEDED. DISSOLVE EACH 17G  DOSE IN 240 ML (8 OUNCES) OF BEVE
     Route: 048
     Dates: start: 20211103

REACTIONS (8)
  - Dehydration [Unknown]
  - Hypertension [Unknown]
  - Urinary tract infection [Recovered/Resolved]
  - Oral candidiasis [Unknown]
  - Decreased appetite [Unknown]
  - Vomiting [Unknown]
  - Nausea [Unknown]
  - Abdominal pain [Unknown]

NARRATIVE: CASE EVENT DATE: 20211207
